FAERS Safety Report 7972550-2 (Version None)
Quarter: 2011Q4

REPORT INFORMATION
  Report Type: 
  Country: None (occurrence: None)
  Receive Date: 20111213
  Receipt Date: 20111201
  Transmission Date: 20120403
  Serious: Yes (Hospitalization, Disabling, Other)
  Sender: FDA-Public Use
  Company Number: US-ELI_LILLY_AND_COMPANY-US201112001295

PATIENT
  Sex: Male
  Weight: 97.052 kg

DRUGS (3)
  1. HUMALOG [Suspect]
     Dosage: UNK, OTHER
     Dates: start: 20070101
  2. HUMALOG [Suspect]
     Dosage: UNK, OTHER
     Dates: start: 20060101, end: 20070101
  3. HUMALOG [Suspect]
     Indication: DIABETES MELLITUS
     Dosage: UNK, OTHER
     Dates: start: 20070101

REACTIONS (9)
  - DISORIENTATION [None]
  - HYPERHIDROSIS [None]
  - BLOOD GLUCOSE DECREASED [None]
  - BLINDNESS [None]
  - BLOOD SODIUM ABNORMAL [None]
  - BLOOD GLUCOSE INCREASED [None]
  - BLOOD PRESSURE INCREASED [None]
  - NEUROPATHY PERIPHERAL [None]
  - DRUG DOSE OMISSION [None]
